FAERS Safety Report 17857870 (Version 1)
Quarter: 2020Q2

REPORT INFORMATION
  Report Type: Spontaneous
  Country: US (occurrence: US)
  Receive Date: 20200604
  Receipt Date: 20200604
  Transmission Date: 20200714
  Serious: Yes (Other)
  Sender: FDA-Public Use
  Company Number: US-AMGEN-USASP2020084687

PATIENT
  Age: 69 Year
  Sex: Female

DRUGS (4)
  1. VITAMIN B12 [Concomitant]
     Active Substance: CYANOCOBALAMIN
     Indication: PERNICIOUS ANAEMIA
  2. HYDROCORTISONE. [Concomitant]
     Active Substance: HYDROCORTISONE
  3. SYNTHROID [Concomitant]
     Active Substance: LEVOTHYROXINE SODIUM
  4. PROLIA [Suspect]
     Active Substance: DENOSUMAB
     Indication: OSTEOPOROSIS POSTMENOPAUSAL
     Dosage: 60 MILLIGRAM, Q6MO
     Route: 065

REACTIONS (9)
  - Spinal pain [Recovering/Resolving]
  - Aspiration bone marrow abnormal [Unknown]
  - Pain in extremity [Recovering/Resolving]
  - Haemolytic anaemia [Unknown]
  - Pain [Unknown]
  - Pneumonitis [Unknown]
  - Nasopharyngitis [Unknown]
  - Cystitis [Unknown]
  - Influenza like illness [Unknown]

NARRATIVE: CASE EVENT DATE: 201904
